FAERS Safety Report 4949163-X (Version None)
Quarter: 2006Q1

REPORT INFORMATION
  Report Type: 
  Country: None (occurrence: None)
  Receive Date: 20060321
  Receipt Date: 20051229
  Transmission Date: 20060701
  Serious: Yes (Hospitalization)
  Sender: FDA-Public Use
  Company Number: JP-MERCK-0601USA00105

PATIENT
  Age: 75 Year
  Sex: Female

DRUGS (6)
  1. PEPCID [Suspect]
     Route: 048
     Dates: end: 20051214
  2. ALEVIATIN [Suspect]
     Indication: PROPHYLAXIS
     Route: 048
     Dates: start: 20051101, end: 20051215
  3. SERMION [Concomitant]
     Route: 048
  4. SENNOSIDES [Concomitant]
     Route: 048
  5. MAGNESIUM OXIDE [Concomitant]
     Route: 048
  6. SYMMETREL [Concomitant]
     Route: 048

REACTIONS (4)
  - DRUG TOXICITY [None]
  - ENCEPHALOPATHY [None]
  - METABOLIC ENCEPHALOPATHY [None]
  - PNEUMONIA ASPIRATION [None]
